FAERS Safety Report 17325545 (Version 1)
Quarter: 2020Q1

REPORT INFORMATION
  Report Type: Spontaneous
  Country: FR (occurrence: FR)
  Receive Date: 20200127
  Receipt Date: 20200127
  Transmission Date: 20200409
  Serious: Yes (Hospitalization)
  Sender: FDA-Public Use
  Company Number: FR-PFIZER INC-2020031354

PATIENT
  Age: 55 Year
  Sex: Male

DRUGS (2)
  1. SOLU-MEDROL [Suspect]
     Active Substance: METHYLPREDNISOLONE SODIUM SUCCINATE
     Indication: STILL^S DISEASE
     Dosage: UNK
     Route: 048
     Dates: start: 20190830, end: 20190830
  2. INFLECTRA [Suspect]
     Active Substance: INFLIXIMAB-DYYB
     Indication: STILL^S DISEASE
     Dosage: 5 MG/KG, UNK
     Route: 042
     Dates: end: 20190830

REACTIONS (3)
  - Product use in unapproved indication [Unknown]
  - Off label use [Unknown]
  - Legionella infection [Recovered/Resolved]

NARRATIVE: CASE EVENT DATE: 20190915
